FAERS Safety Report 6580437-5 (Version None)
Quarter: 2010Q1

REPORT INFORMATION
  Report Type: 
  Country: None (occurrence: None)
  Receive Date: 20100212
  Receipt Date: 20100205
  Transmission Date: 20100710
  Serious: Yes (Hospitalization)
  Sender: FDA-Public Use
  Company Number: PHHO2010CA02122

PATIENT
  Sex: Male
  Weight: 78 kg

DRUGS (1)
  1. AFINITOR [Suspect]
     Indication: RENAL CANCER
     Dosage: 10 MG, QD
     Dates: end: 20100108

REACTIONS (6)
  - COUGH [None]
  - DYSPNOEA [None]
  - PNEUMONITIS [None]
  - PULMONARY OEDEMA [None]
  - RALES [None]
  - RASH GENERALISED [None]
